FAERS Safety Report 17366080 (Version 2)
Quarter: 2024Q1

REPORT INFORMATION
  Report Type: Report from Study
  Country: FR (occurrence: FR)
  Receive Date: 20200204
  Receipt Date: 20240308
  Transmission Date: 20240409
  Serious: Yes (Death)
  Sender: FDA-Public Use
  Company Number: FR-BAUSCH-BL-2019-066736

PATIENT
  Age: 54 Year
  Sex: Male

DRUGS (12)
  1. DOXORUBICIN HYDROCHLORIDE [Suspect]
     Active Substance: DOXORUBICIN HYDROCHLORIDE
     Indication: Bing-Neel syndrome
     Dosage: UNK
     Route: 042
  2. METHOTREXATE SODIUM [Suspect]
     Active Substance: METHOTREXATE SODIUM
     Indication: Bing-Neel syndrome
     Dosage: HIGH-DOSE
     Route: 042
  3. CYTARABINE [Suspect]
     Active Substance: CYTARABINE
     Indication: Bing-Neel syndrome
     Dosage: UNK
     Route: 042
  4. VINCRISTINE SULFATE [Suspect]
     Active Substance: VINCRISTINE SULFATE
     Indication: Bing-Neel syndrome
     Dosage: UNK
     Route: 042
  5. PREDNISONE [Suspect]
     Active Substance: PREDNISONE
     Indication: Bing-Neel syndrome
     Dosage: UNK
     Route: 042
  6. CISPLATIN [Suspect]
     Active Substance: CISPLATIN
     Indication: Bing-Neel syndrome
     Dosage: UNK
     Route: 042
  7. THIOTEPA [Suspect]
     Active Substance: THIOTEPA
     Indication: Prophylaxis against transplant rejection
     Dosage: 250 MG/M2, D-9, D-8, D-7
  8. RITUXIMAB [Suspect]
     Active Substance: RITUXIMAB
     Indication: Bing-Neel syndrome
     Dosage: UNK
     Route: 042
  9. CYCLOPHOSPHAMIDE [Suspect]
     Active Substance: CYCLOPHOSPHAMIDE
     Indication: Bing-Neel syndrome
     Dosage: 60 MG/KG, D-3, D-2
     Route: 042
  10. CYCLOPHOSPHAMIDE [Suspect]
     Active Substance: CYCLOPHOSPHAMIDE
     Indication: Prophylaxis against transplant rejection
     Dosage: SYSTEMIC ROUTE
     Route: 065
  11. BUSULFAN [Suspect]
     Active Substance: BUSULFAN
     Indication: Prophylaxis against transplant rejection
     Dosage: 0.67 MG/KG, 1X/DAY, D-9, D-8, D-7
     Route: 065
  12. DEXAMETHASONE [Suspect]
     Active Substance: DEXAMETHASONE
     Indication: Bing-Neel syndrome
     Dosage: UNK
     Route: 037

REACTIONS (2)
  - Toxicity to various agents [Fatal]
  - Pneumonia [Fatal]
